FAERS Safety Report 5283663-0 (Version None)
Quarter: 2007Q1

REPORT INFORMATION
  Report Type: 
  Country: None (occurrence: None)
  Receive Date: 20070329
  Receipt Date: 20070329
  Transmission Date: 20070707
  Serious: Yes (Disabling)
  Sender: FDA-Public Use
  Company Number: None

PATIENT
  Age: 75 Year
  Sex: Male

DRUGS (11)
  1. LISINOPRIL [Suspect]
     Indication: HYPERTENSION
     Dosage: 40MG DAILY PO
     Route: 048
     Dates: start: 20051001, end: 20070130
  2. ASPIRIN [Concomitant]
  3. ENOXAPARIN SODIUM [Concomitant]
  4. FELODIPINE [Concomitant]
  5. HYDROCHLOROTHIAZIDE [Concomitant]
  6. REGULAR INSULIN [Concomitant]
  7. METOPROLOL SUCCINATE [Concomitant]
  8. NITROGLYCERIN [Concomitant]
  9. RANITIDINE/SODIUM CHLORIDE [Concomitant]
  10. SODIUM CHLORIDE [Concomitant]
  11. WARFARIN NA [Concomitant]

REACTIONS (4)
  - CHOKING SENSATION [None]
  - DYSPNOEA [None]
  - PHARYNGEAL OEDEMA [None]
  - STRIDOR [None]
